FAERS Safety Report 18197841 (Version 2)
Quarter: 2020Q3

REPORT INFORMATION
  Report Type: Spontaneous
  Country: US (occurrence: US)
  Receive Date: 20200826
  Receipt Date: 20200904
  Transmission Date: 20201103
  Serious: No
  Sender: FDA-Public Use
  Company Number: US-BEH-2020121636

PATIENT
  Age: 37 Year
  Sex: Female
  Weight: 56.69 kg

DRUGS (7)
  1. ALOE VERA [Concomitant]
     Active Substance: ALOE VERA LEAF
  2. HIZENTRA [Suspect]
     Active Substance: HUMAN IMMUNOGLOBULIN G
     Dosage: UNK
     Route: 058
  3. PRENATE [FOLIC ACID;IRON;MINERALS NOS;VITAMINS NOS] [Concomitant]
  4. HIZENTRA [Suspect]
     Active Substance: HUMAN IMMUNOGLOBULIN G
     Indication: CHRONIC INFLAMMATORY DEMYELINATING POLYRADICULONEUROPATHY
     Dosage: 70 MILLILITER, QW, 14G VIA ONE 50ML AND ONE 20ML VIAL
     Route: 058
     Dates: start: 20180519
  5. HIZENTRA [Suspect]
     Active Substance: HUMAN IMMUNOGLOBULIN G
     Dosage: UNK
     Route: 058
  6. GABAPENTIN. [Concomitant]
     Active Substance: GABAPENTIN
  7. HIZENTRA [Suspect]
     Active Substance: HUMAN IMMUNOGLOBULIN G
     Dosage: 14 GRAM, TOT VIA ONE 50ML AND ONE 20ML VIAL
     Route: 058
     Dates: start: 20200821, end: 20200821

REACTIONS (10)
  - Nervousness [Recovering/Resolving]
  - Product distribution issue [Unknown]
  - Fatigue [Recovering/Resolving]
  - Product distribution issue [Recovering/Resolving]
  - Balance disorder [Recovering/Resolving]
  - Product dose omission issue [Unknown]
  - Product dose omission issue [Not Recovered/Not Resolved]
  - Asthenia [Not Recovered/Not Resolved]
  - Product dose omission issue [Recovering/Resolving]
  - Stress [Unknown]

NARRATIVE: CASE EVENT DATE: 20200815
